FAERS Safety Report 6847990-5 (Version None)
Quarter: 2010Q3

REPORT INFORMATION
  Report Type: 
  Country: None (occurrence: None)
  Receive Date: 20100716
  Receipt Date: 20100706
  Transmission Date: 20110219
  Serious: Yes (Other)
  Sender: FDA-Public Use
  Company Number: FR-WYE-H16070510

PATIENT
  Age: 60 Year
  Sex: Male

DRUGS (2)
  1. PANTOPRAZOLE [Suspect]
     Indication: BARRETT'S OESOPHAGUS
  2. PANTOPRAZOLE [Suspect]
     Indication: HIATUS HERNIA

REACTIONS (1)
  - NEUTROPENIA [None]
